FAERS Safety Report 11793795 (Version 1)
Quarter: 2015Q4

REPORT INFORMATION
  Report Type: Spontaneous
  Country: BE (occurrence: BE)
  Receive Date: 20151202
  Receipt Date: 20151202
  Transmission Date: 20160305
  Serious: Yes (Other)
  Sender: FDA-Public Use
  Company Number: BE-GLAXOSMITHKLINE-BE2015GSK169740

PATIENT
  Age: 40 Year
  Sex: Male

DRUGS (4)
  1. LAMICTAL [Suspect]
     Active Substance: LAMOTRIGINE
     Indication: EPILEPSY
     Dosage: 50 MG, TID
     Dates: start: 201501
  2. KEPPRA [Concomitant]
     Active Substance: LEVETIRACETAM
     Indication: EPILEPSY
     Dosage: 1.5 G, BID ( MORNING AND EVENING)
     Dates: start: 2011
  3. PERINDOPRIL [Concomitant]
     Active Substance: PERINDOPRIL
     Indication: HYPERTENSION
     Dosage: 4 MG, QD (MORNING)
     Dates: start: 2011
  4. TEMESTA [Concomitant]
     Active Substance: LORAZEPAM
     Dosage: 9 MG, SINGLE
     Dates: start: 20151123, end: 20151123

REACTIONS (3)
  - Nervousness [Unknown]
  - Cough [Unknown]
  - Suicidal ideation [Unknown]

NARRATIVE: CASE EVENT DATE: 2015
